FAERS Safety Report 9981759 (Version 1)
Quarter: 2014Q1

REPORT INFORMATION
  Report Type: Spontaneous
  Country: US (occurrence: None)
  Receive Date: 20140306
  Receipt Date: 20140306
  Transmission Date: 20141002
  Serious: Yes (Other)
  Sender: FDA-Public Use
  Company Number: None

PATIENT
  Age: 59 Year
  Sex: Male
  Weight: 88.2 kg

DRUGS (2)
  1. CLOZAPINE 200 MG [Suspect]
     Indication: SCHIZOPHRENIA
     Dosage: 2 MONTHS 1 DOSE BID ORAL
     Route: 048
  2. CLOZAPINE 100 MG TABLETS [Suspect]
     Indication: SCHIZOPHRENIA
     Dosage: 3 MONTHS 1 DOSE BID ORAL
     Route: 048

REACTIONS (1)
  - Convulsion [None]
